FAERS Safety Report 6613497-3 (Version None)
Quarter: 2010Q1

REPORT INFORMATION
  Report Type: 
  Country: None (occurrence: None)
  Receive Date: 20100304
  Receipt Date: 20100224
  Transmission Date: 20100710
  Serious: Yes (Other)
  Sender: FDA-Public Use
  Company Number: US-JNJFOC-20091201765

PATIENT
  Sex: Female
  Weight: 47.63 kg

DRUGS (11)
  1. DURAGESIC-100 [Suspect]
     Indication: BACK PAIN
     Dosage: 3 X 100 UG/HR, 3 PATCHES (100+100+100) IN 48-72 HOURS
     Route: 062
  2. DURAGESIC-100 [Suspect]
     Indication: PAIN
     Dosage: 3 X 100 UG/HR, 3 PATCHES (100+100+100) IN 48-72 HOURS
     Route: 062
  3. DURAGESIC-100 [Suspect]
     Indication: BONE PAIN
     Dosage: 3 X 100 UG/HR, 3 PATCHES (100+100+100) IN 48-72 HOURS
     Route: 062
  4. DURAGESIC-100 [Suspect]
     Indication: HEADACHE
     Dosage: 3 X 100 UG/HR, 3 PATCHES (100+100+100) IN 48-72 HOURS
     Route: 062
  5. DURAGESIC-100 [Suspect]
     Dosage: 3 X 100 UG/HR, 3 PATCHES (100+100+100) IN 48-72 HOURS
     Route: 062
  6. DURAGESIC-100 [Suspect]
     Dosage: 3 X 100 UG/HR, 3 PATCHES (100+100+100) IN 48-72 HOURS
     Route: 062
  7. NORCO [Concomitant]
     Indication: BREAKTHROUGH PAIN
     Route: 048
  8. HYDROCODONE [Concomitant]
     Indication: PAIN
     Route: 048
  9. SOMA [Concomitant]
     Indication: MUSCLE RELAXANT THERAPY
     Route: 048
     Dates: start: 19890101
  10. LYRICA [Concomitant]
     Indication: FIBROMYALGIA
     Route: 048
  11. NEURONTIN [Concomitant]
     Indication: FIBROMYALGIA
     Route: 048

REACTIONS (13)
  - ARTHRALGIA [None]
  - BACK PAIN [None]
  - CONVULSION [None]
  - DRUG DOSE OMISSION [None]
  - FALL [None]
  - FEMUR FRACTURE [None]
  - INADEQUATE ANALGESIA [None]
  - LOSS OF CONSCIOUSNESS [None]
  - MALAISE [None]
  - PAIN [None]
  - PAIN IN EXTREMITY [None]
  - PRODUCT PACKAGING QUANTITY ISSUE [None]
  - ROAD TRAFFIC ACCIDENT [None]
